FAERS Safety Report 20756002 (Version 2)
Quarter: 2022Q2

REPORT INFORMATION
  Report Type: Report from Study
  Country: US (occurrence: US)
  Receive Date: 20220427
  Receipt Date: 20220502
  Transmission Date: 20220720
  Serious: No
  Sender: FDA-Public Use
  Company Number: US-NOVARTISTESTPH-NVSC2022US096643

PATIENT
  Age: 64 Year
  Sex: Female

DRUGS (1)
  1. ENTRESTO [Suspect]
     Active Substance: SACUBITRIL\VALSARTAN
     Indication: Heart disease congenital
     Dosage: 97/103 MG
     Route: 065
     Dates: start: 202106

REACTIONS (6)
  - COVID-19 [Unknown]
  - Flatulence [Not Recovered/Not Resolved]
  - Dysgeusia [Recovering/Resolving]
  - Diarrhoea [Unknown]
  - Abdominal pain upper [Unknown]
  - Product use in unapproved indication [Unknown]

NARRATIVE: CASE EVENT DATE: 20220401
